FAERS Safety Report 6841441-2 (Version None)
Quarter: 2010Q3

REPORT INFORMATION
  Report Type: 
  Country: None (occurrence: None)
  Receive Date: 20100714
  Receipt Date: 20070703
  Transmission Date: 20110219
  Serious: No
  Sender: FDA-Public Use
  Company Number: US-PFIZER INC-2007056087

PATIENT
  Sex: Female
  Weight: 77.272 kg

DRUGS (6)
  1. CHANTIX [Suspect]
     Indication: SMOKING CESSATION THERAPY
     Dates: start: 20070601
  2. ZANTAC [Concomitant]
     Indication: GASTROOESOPHAGEAL REFLUX DISEASE
  3. BENTYL [Concomitant]
     Indication: GASTROOESOPHAGEAL REFLUX DISEASE
  4. ALL OTHER THERAPEUTIC PRODUCTS [Concomitant]
  5. MOBIC [Concomitant]
     Indication: OSTEOARTHRITIS
  6. WELLBUTRIN [Concomitant]
     Dates: start: 20060101

REACTIONS (6)
  - ABDOMINAL DISCOMFORT [None]
  - ABNORMAL DREAMS [None]
  - FATIGUE [None]
  - INSOMNIA [None]
  - NAUSEA [None]
  - VOMITING [None]
